FAERS Safety Report 11719894 (Version 1)
Quarter: 2015Q4

REPORT INFORMATION
  Report Type: Spontaneous
  Country: BR (occurrence: BR)
  Receive Date: 20151110
  Receipt Date: 20151110
  Transmission Date: 20160304
  Serious: Yes (Hospitalization, Other)
  Sender: FDA-Public Use
  Company Number: BR-ROCHE-1655962

PATIENT
  Age: 57 Year
  Sex: Female

DRUGS (2)
  1. MITOXANTRONE [Suspect]
     Active Substance: MITOXANTRONE HYDROCHLORIDE
     Indication: PRODUCT USED FOR UNKNOWN INDICATION
     Route: 065
  2. HERCEPTIN [Suspect]
     Active Substance: TRASTUZUMAB
     Indication: BREAST CANCER
     Route: 065

REACTIONS (9)
  - Pyrexia [Unknown]
  - Immunodeficiency [Unknown]
  - Pneumonia [Unknown]
  - Acute myeloid leukaemia [Not Recovered/Not Resolved]
  - Cardiac failure [Recovered/Resolved]
  - Tremor [Unknown]
  - Asthenia [Unknown]
  - Decreased appetite [Unknown]
  - Infection [Unknown]

NARRATIVE: CASE EVENT DATE: 201409
